FAERS Safety Report 24463135 (Version 1)
Quarter: 2024Q4

REPORT INFORMATION
  Report Type: Report from Study
  Country: US (occurrence: US)
  Receive Date: 20241018
  Receipt Date: 20241018
  Transmission Date: 20250114
  Serious: No
  Sender: ROCHE
  Company Number: US-ROCHE-2935349

PATIENT
  Age: 57 Year
  Sex: Female

DRUGS (2)
  1. XOLAIR [Suspect]
     Active Substance: OMALIZUMAB
     Indication: Urticaria
     Dosage: STRENGHT(150MG)?SCRIPT STATES ONCE IN 28 DAYS. 150 MG INJECTION 450 MG SUBCUTANEOUS ONCE IN 21 DAYS+
     Route: 058
  2. XOLAIR [Suspect]
     Active Substance: OMALIZUMAB
     Indication: Urticaria contact

REACTIONS (2)
  - Off label use [Unknown]
  - No adverse event [Unknown]
